FAERS Safety Report 25289533 (Version 1)
Quarter: 2025Q2

REPORT INFORMATION
  Report Type: Spontaneous
  Country: US (occurrence: None)
  Receive Date: 20250509
  Receipt Date: 20250509
  Transmission Date: 20250717
  Serious: Yes (Other)
  Sender: FDA-CTU
  Company Number: None

PATIENT
  Age: 68 Year
  Sex: Female
  Weight: 134.55 kg

DRUGS (8)
  1. OXYTROL [Suspect]
     Active Substance: OXYBUTYNIN
     Indication: Hypertonic bladder
     Route: 062
     Dates: start: 20250318, end: 20250502
  2. METFORMIN [Concomitant]
     Active Substance: METFORMIN HYDROCHLORIDE
     Dosage: FREQUENCY : TWICE A DAY;?
  3. Januvia 100mg daily [Concomitant]
     Dosage: FREQUENCY : DAILY;?
  4. Actos 45 mg daily [Concomitant]
     Dosage: FREQUENCY : DAILY;?
  5. Lisinopri/HCTZ 20/25mg daily [Concomitant]
     Dosage: FREQUENCY : DAILY;?
  6. ADVIL [Concomitant]
     Active Substance: IBUPROFEN
  7. TYLENOL [Concomitant]
     Active Substance: ACETAMINOPHEN
  8. CRESTOR [Concomitant]
     Active Substance: ROSUVASTATIN CALCIUM

REACTIONS (6)
  - Rash papular [None]
  - Rash erythematous [None]
  - Urticaria [None]
  - Pain [None]
  - Swelling [None]
  - Pruritus [None]

NARRATIVE: CASE EVENT DATE: 20250502
